FAERS Safety Report 7401046-1 (Version None)
Quarter: 2011Q2

REPORT INFORMATION
  Report Type: 
  Country: None (occurrence: None)
  Receive Date: 20110407
  Receipt Date: 20110111
  Transmission Date: 20111010
  Serious: Yes (Other)
  Sender: FDA-Public Use
  Company Number: BR-PFIZER INC-2011007471

PATIENT
  Age: 29 Year
  Sex: Female
  Weight: 62 kg

DRUGS (3)
  1. METFORMIN [Concomitant]
     Dosage: UNK
  2. FARLUTAL [Suspect]
     Indication: AMENORRHOEA
     Dosage: 10 MG, 1X/DAY
     Route: 048
     Dates: start: 20101201, end: 20110101
  3. FARLUTAL [Suspect]
     Indication: OVARIAN CYST

REACTIONS (4)
  - MALAISE [None]
  - METRORRHAGIA [None]
  - NAUSEA [None]
  - ANOSMIA [None]
